FAERS Safety Report 5501211-4 (Version None)
Quarter: 2007Q4

REPORT INFORMATION
  Report Type: 
  Country: None (occurrence: None)
  Receive Date: 20071029
  Receipt Date: 20071017
  Transmission Date: 20080405
  Serious: Yes (Other)
  Sender: FDA-Public Use
  Company Number: US-PFIZER INC-2007087670

PATIENT
  Sex: Female

DRUGS (3)
  1. NORVASC [Suspect]
     Indication: CARDIAC DISORDER
  2. CORDARONE [Concomitant]
  3. COUMADIN [Concomitant]

REACTIONS (3)
  - BLOOD CHOLESTEROL INCREASED [None]
  - CARDIAC PACEMAKER INSERTION [None]
  - OSTEOPOROSIS [None]
